FAERS Safety Report 5135892-4 (Version None)
Quarter: 2006Q4

REPORT INFORMATION
  Report Type: 
  Country: None (occurrence: None)
  Receive Date: 20061026
  Receipt Date: 20051216
  Transmission Date: 20070319
  Serious: Yes (Congenital Anomaly)
  Sender: FDA-Public Use
  Company Number: GB-MERCK-0512GBR00095

PATIENT

DRUGS (1)
  1. FOSAMAX [Suspect]

REACTIONS (2)
  - HEAD CIRCUMFERENCE ABNORMAL [None]
  - HYPOSPADIAS [None]
